FAERS Safety Report 4338704-1 (Version None)
Quarter: 2004Q2

REPORT INFORMATION
  Report Type: 
  Country: None (occurrence: None)
  Receive Date: 20040409
  Receipt Date: 20040402
  Transmission Date: 20050107
  Serious: Yes (Hospitalization, Other)
  Sender: FDA-Public Use
  Company Number: US-SHR-04-023244

PATIENT
  Age: 72 Year
  Sex: Female

DRUGS (2)
  1. FLUDARA [Suspect]
     Dosage: 25 MG/M2, CYCLE X 5D (4 CYCLES), INTRAVENOUS
     Route: 042
     Dates: start: 20031101, end: 20040304
  2. RITUXAN [Suspect]
     Dosage: INTRAVENOUS
     Route: 042
     Dates: start: 20031101, end: 20040304

REACTIONS (3)
  - PNEUMOCYSTIS CARINII PNEUMONIA [None]
  - POLYNEUROPATHY [None]
  - URINARY INCONTINENCE [None]
